FAERS Safety Report 8215877-1 (Version None)
Quarter: 2012Q1

REPORT INFORMATION
  Report Type: 
  Country: None (occurrence: None)
  Receive Date: 20120316
  Receipt Date: 20120308
  Transmission Date: 20120608
  Serious: Yes (Other)
  Sender: FDA-Public Use
  Company Number: JP-ROXANE LABORATORIES, INC.-2012-RO-00820RO

PATIENT
  Age: 61 Year
  Sex: Male

DRUGS (1)
  1. FLUTICASONE FUROATE [Suspect]
     Indication: ASTHMA
     Dosage: 400 MCG
     Route: 055

REACTIONS (1)
  - MYCOBACTERIUM KANSASII INFECTION [None]
